FAERS Safety Report 4266795-5 (Version None)
Quarter: 2004Q1

REPORT INFORMATION
  Report Type: 
  Country: None (occurrence: None)
  Receive Date: 20040108
  Receipt Date: 20031218
  Transmission Date: 20041129
  Serious: Yes (Other)
  Sender: FDA-Public Use
  Company Number: US-ROCHE-354551

PATIENT
  Age: 43 Year
  Sex: Female
  Weight: 69.4 kg

DRUGS (7)
  1. PEGASYS [Suspect]
     Dosage: DOSING REGIMEN REPORTED AS Q WEEKLY.
     Route: 058
     Dates: start: 20030217, end: 20031117
  2. PEGASYS [Suspect]
     Route: 058
  3. COPEGUS [Suspect]
     Route: 048
     Dates: start: 20030217, end: 20031117
  4. COPEGUS [Suspect]
     Route: 048
  5. NAPROSYN [Concomitant]
     Route: 048
     Dates: start: 20021015
  6. PROTONIX [Concomitant]
     Dosage: DOSING REGIMEN REPORTED AS QD.
     Route: 048
     Dates: start: 20021119
  7. WELLBUTRIN [Concomitant]
     Dosage: DOSING REGIMEN REPORTED AS QD.
     Route: 048
     Dates: start: 20021015

REACTIONS (3)
  - ANAEMIA [None]
  - VAGINAL HAEMORRHAGE [None]
  - WEIGHT DECREASED [None]
